FAERS Safety Report 12628494 (Version 1)
Quarter: 2016Q3

REPORT INFORMATION
  Report Type: Spontaneous
  Country: US (occurrence: None)
  Receive Date: 20160805
  Receipt Date: 20160805
  Transmission Date: 20161109
  Serious: No
  Sender: FDA-Public Use
  Company Number: None

PATIENT
  Age: 57 Year
  Sex: Female

DRUGS (1)
  1. IBRANCE [Suspect]
     Active Substance: PALBOCICLIB
     Indication: BREAST CANCER
     Dosage: 125MG QD FOR 21 D, OFF 7 D ORAL
     Route: 048
     Dates: start: 20160609, end: 20160629

REACTIONS (1)
  - Neutropenia [None]

NARRATIVE: CASE EVENT DATE: 20160615
